FAERS Safety Report 25861141 (Version 1)
Quarter: 2025Q3

REPORT INFORMATION
  Report Type: Other
  Country: US (occurrence: US)
  Receive Date: 20250929
  Receipt Date: 20250929
  Transmission Date: 20251020
  Serious: Yes (Hospitalization, Other)
  Sender: HLS THERAPEUTICS
  Company Number: US-HLS-202500336

PATIENT
  Age: 59 Year
  Sex: Male

DRUGS (5)
  1. CLOZAPINE [Suspect]
     Active Substance: CLOZAPINE
     Indication: Product used for unknown indication
     Route: 065
     Dates: start: 1998
  2. RISPERIDONE [Suspect]
     Active Substance: RISPERIDONE
     Indication: Product used for unknown indication
     Route: 065
     Dates: start: 1998
  3. OSELTAMIVIR [Concomitant]
     Active Substance: OSELTAMIVIR
     Indication: Skin discolouration
     Route: 065
  4. BISOPROLOL [Concomitant]
     Active Substance: BISOPROLOL
     Indication: Arrhythmia
     Route: 065
  5. IRON [Concomitant]
     Active Substance: IRON
     Indication: Iron deficiency
     Route: 048
     Dates: start: 2017

REACTIONS (5)
  - Confusional state [Unknown]
  - Arrhythmia [Unknown]
  - Psychotic disorder [Unknown]
  - Skin discolouration [Recovered/Resolved]
  - Iron deficiency [Unknown]

NARRATIVE: CASE EVENT DATE: 20120101
